FAERS Safety Report 19066012 (Version 1)
Quarter: 2021Q1

REPORT INFORMATION
  Report Type: Spontaneous
  Country: FR (occurrence: FR)
  Receive Date: 20210327
  Receipt Date: 20210327
  Transmission Date: 20210420
  Serious: Yes (Hospitalization)
  Sender: FDA-Public Use
  Company Number: FR-TEVA-2021-FR-1894014

PATIENT
  Age: 62 Year
  Sex: Female

DRUGS (6)
  1. PARACETAMOL [Suspect]
     Active Substance: ACETAMINOPHEN
     Route: 065
     Dates: start: 20210218
  2. CEFOTAXIME BASE [Suspect]
     Active Substance: CEFOTAXIME SODIUM
     Route: 065
     Dates: start: 20210218
  3. AZITHROMYCINE [Suspect]
     Active Substance: AZITHROMYCIN
     Route: 065
     Dates: start: 20210218
  4. AMITRIPTYLINE [Suspect]
     Active Substance: AMITRIPTYLINE
     Route: 065
     Dates: start: 20210218
  5. TINZAPARINE SODIQUE ((MAMMIFERE/PORC/MUQUEUSE INTESTINALE)) [Suspect]
     Active Substance: TINZAPARIN SODIUM
     Route: 065
     Dates: start: 20210218
  6. METHYLPREDNISOLONE. [Suspect]
     Active Substance: METHYLPREDNISOLONE
     Route: 065
     Dates: start: 20210218

REACTIONS (2)
  - Hepatocellular injury [Not Recovered/Not Resolved]
  - Jaundice [Not Recovered/Not Resolved]

NARRATIVE: CASE EVENT DATE: 20210218
